FAERS Safety Report 8795407 (Version 3)
Quarter: 2013Q1

REPORT INFORMATION
  Report Type: Report from Study
  Country: CA (occurrence: CA)
  Receive Date: 20120917
  Receipt Date: 20130208
  Transmission Date: 20140127
  Serious: Yes (Hospitalization, Other)
  Sender: FDA-Public Use
  Company Number: CA-ABBOTT-12P-028-0978639-00

PATIENT
  Sex: Male
  Weight: 59.02 kg

DRUGS (1)
  1. LUPRON DEPOT [Suspect]
     Indication: PROSTATE CANCER
     Dates: start: 20110509

REACTIONS (2)
  - Jejunostomy [Unknown]
  - Activities of daily living impaired [Not Recovered/Not Resolved]
